FAERS Safety Report 8196673-0 (Version None)
Quarter: 2012Q1

REPORT INFORMATION
  Report Type: 
  Country: None (occurrence: None)
  Receive Date: 20120309
  Receipt Date: 20120306
  Transmission Date: 20120608
  Serious: Yes (Death)
  Sender: FDA-Public Use
  Company Number: US-ACTELION-A-US2012-62321

PATIENT

DRUGS (4)
  1. SPIRONOLACTONE [Concomitant]
  2. DIGOXIN [Concomitant]
  3. VENTAVIS [Suspect]
     Indication: PULMONARY ARTERIAL HYPERTENSION
     Dosage: UNK
     Route: 055
     Dates: start: 20120125, end: 20120201
  4. SILDENAFIL [Concomitant]

REACTIONS (1)
  - DEATH [None]
